FAERS Safety Report 6770522-7 (Version None)
Quarter: 2010Q2

REPORT INFORMATION
  Report Type: 
  Country: None (occurrence: None)
  Receive Date: 20100615
  Receipt Date: 20100608
  Transmission Date: 20101027
  Serious: Yes (Other)
  Sender: FDA-Public Use
  Company Number: US-SANOFI-AVENTIS-2010SA033732

PATIENT
  Age: 66 Year
  Sex: Female

DRUGS (2)
  1. LANTUS [Suspect]
     Indication: INSULIN-REQUIRING TYPE 2 DIABETES MELLITUS
     Dosage: DOSE:75 UNIT(S)
     Route: 058
  2. SOLOSTAR [Suspect]
     Indication: INSULIN-REQUIRING TYPE 2 DIABETES MELLITUS

REACTIONS (1)
  - APPENDICECTOMY [None]
